FAERS Safety Report 4815502-3 (Version None)
Quarter: 2005Q4

REPORT INFORMATION
  Report Type: 
  Country: None (occurrence: None)
  Receive Date: 20051027
  Receipt Date: 20051021
  Transmission Date: 20060501
  Serious: Yes (Other)
  Sender: FDA-Public Use
  Company Number: 143486USA

PATIENT
  Age: 61 Year
  Sex: Female

DRUGS (3)
  1. PIMOZIDE [Suspect]
     Dosage: ORAL
     Route: 048
  2. HALOPERIDOL [Suspect]
     Dosage: ORAL
     Route: 048
  3. AMITRIPTYLINE HCL [Suspect]
     Dosage: ORAL
     Route: 048

REACTIONS (4)
  - EXTRAPYRAMIDAL DISORDER [None]
  - INTENTIONAL DRUG MISUSE [None]
  - OROPHARYNGEAL SPASM [None]
  - SOMNOLENCE [None]
